APPROVED DRUG PRODUCT: AMIKIN
Active Ingredient: AMIKACIN SULFATE
Strength: EQ 250MG BASE/ML
Dosage Form/Route: INJECTABLE;INJECTION
Application: A062562 | Product #002
Applicant: APOTHECON INC DIV BRISTOL MYERS SQUIBB
Approved: Sep 20, 1984 | RLD: No | RS: No | Type: DISCN